FAERS Safety Report 6181269-2 (Version None)
Quarter: 2009Q2

REPORT INFORMATION
  Report Type: 
  Country: None (occurrence: None)
  Receive Date: 20090506
  Receipt Date: 20090427
  Transmission Date: 20091009
  Serious: Yes (Other)
  Sender: FDA-Public Use
  Company Number: US-PFIZER INC-2007068459

PATIENT
  Sex: Female
  Weight: 65.306 kg

DRUGS (4)
  1. CHANTIX [Suspect]
     Indication: SMOKING CESSATION THERAPY
     Dosage: 1 MG, 2X/DAY
     Route: 048
     Dates: start: 20070722, end: 20070801
  2. CHANTIX [Suspect]
     Indication: NICOTINE DEPENDENCE
  3. ZOLOFT [Suspect]
     Indication: PANIC DISORDER
     Dosage: 50 MG, 3X/DAY
     Route: 048
     Dates: start: 20041101
  4. XANAX [Concomitant]
     Dosage: UNK

REACTIONS (10)
  - AGITATION [None]
  - ANOREXIA [None]
  - DIARRHOEA [None]
  - GASTROINTESTINAL DISORDER [None]
  - INSOMNIA [None]
  - MUSCLE TIGHTNESS [None]
  - NAUSEA [None]
  - PANIC ATTACK [None]
  - SEROTONIN SYNDROME [None]
  - TREMOR [None]
